FAERS Safety Report 4938762-7 (Version None)
Quarter: 2006Q1

REPORT INFORMATION
  Report Type: 
  Country: None (occurrence: None)
  Receive Date: 20060127
  Receipt Date: 20051102
  Transmission Date: 20060701
  Serious: Yes (Other)
  Sender: FDA-Public Use
  Company Number: 2005150909

PATIENT
  Age: 88 Year
  Sex: Female
  Weight: 78.9259 kg

DRUGS (7)
  1. LYRICA [Suspect]
     Indication: DIABETIC NEUROPATHY
     Dosage: 150 MG (75 MG, 2 IN 1 D)
     Dates: start: 20050923, end: 20051030
  2. RESTORIL [Concomitant]
  3. ATIVAN [Concomitant]
  4. ACTOS [Concomitant]
  5. AMARYL [Concomitant]
  6. THYROID TAB [Concomitant]
  7. LISINOPRIL [Concomitant]

REACTIONS (7)
  - ASTHENIA [None]
  - ERUCTATION [None]
  - FEELING ABNORMAL [None]
  - GAIT DISTURBANCE [None]
  - LACRIMATION INCREASED [None]
  - STOMACH DISCOMFORT [None]
  - VISION BLURRED [None]
